FAERS Safety Report 8395311-1 (Version None)
Quarter: 2012Q2

REPORT INFORMATION
  Report Type: 
  Country: None (occurrence: None)
  Receive Date: 20120530
  Receipt Date: 20120518
  Transmission Date: 20120825
  Serious: Yes (Other)
  Sender: FDA-Public Use
  Company Number: US-ELI_LILLY_AND_COMPANY-US201103004139

PATIENT
  Sex: Female
  Weight: 62.585 kg

DRUGS (5)
  1. CYMBALTA [Suspect]
     Indication: MAJOR DEPRESSION
     Dosage: 60 MG, BID
     Route: 048
     Dates: start: 20070405
  2. PROVIGIL [Concomitant]
     Dosage: UNK, PRN
  3. XANAX                                   /USA/ [Concomitant]
     Dosage: 25 MG, PRN
  4. CYMBALTA [Suspect]
     Dosage: 100 MG, UNK
  5. AMBIEN CR [Concomitant]
     Dosage: 12.5 MG, EACH EVENING

REACTIONS (26)
  - PARANOIA [None]
  - NERVOUSNESS [None]
  - NAUSEA [None]
  - DIARRHOEA [None]
  - ALOPECIA [None]
  - PERSONALITY CHANGE [None]
  - DYSPEPSIA [None]
  - INFLUENZA LIKE ILLNESS [None]
  - MALAISE [None]
  - CHEST PAIN [None]
  - PANIC ATTACK [None]
  - IRRITABILITY [None]
  - FATIGUE [None]
  - ANXIETY [None]
  - VISION BLURRED [None]
  - INSOMNIA [None]
  - PHYSICAL ASSAULT [None]
  - AGGRESSION [None]
  - CRYING [None]
  - TENSION [None]
  - SELF-INJURIOUS IDEATION [None]
  - SUICIDAL IDEATION [None]
  - DEPRESSION [None]
  - MOOD SWINGS [None]
  - AGITATION [None]
  - CONFUSIONAL STATE [None]
